FAERS Safety Report 10660392 (Version 4)
Quarter: 2015Q1

REPORT INFORMATION
  Report Type: Spontaneous
  Country: US (occurrence: US)
  Receive Date: 20141217
  Receipt Date: 20150120
  Transmission Date: 20150720
  Serious: No
  Sender: FDA-Public Use
  Company Number: US-GLAXOSMITHKLINE-A1086578A

PATIENT

DRUGS (1)
  1. VOTRIENT [Suspect]
     Active Substance: PAZOPANIB HYDROCHLORIDE
     Indication: RENAL CELL CARCINOMA
     Dosage: 200 MG TABLETS.400 MG DAILY.
     Route: 065
     Dates: start: 20140807

REACTIONS (8)
  - Fatigue [Unknown]
  - Decreased appetite [Unknown]
  - Dry skin [Unknown]
  - Skin tightness [Unknown]
  - Blister [Unknown]
  - Gingivitis [Unknown]
  - Tooth extraction [Unknown]
  - Weight decreased [Unknown]
